FAERS Safety Report 9149353 (Version 1)
Quarter: 2013Q1

REPORT INFORMATION
  Report Type: Spontaneous
  Country: US (occurrence: None)
  Receive Date: 20130301
  Receipt Date: 20130301
  Transmission Date: 20140127
  Serious: No
  Sender: FDA-Public Use
  Company Number: None

PATIENT
  Sex: 0

DRUGS (1)
  1. TUBERCULIN NOS [Suspect]
     Dosage: L FOREARM

REACTIONS (1)
  - Injection site erythema [None]
